FAERS Safety Report 9002279 (Version 1)
Quarter: 2012Q4

REPORT INFORMATION
  Report Type: Spontaneous
  Country: US (occurrence: None)
  Receive Date: 20121116
  Receipt Date: 20121116
  Transmission Date: 20130627
  Serious: Yes (Life-Threatening)
  Sender: FDA-Public Use
  Company Number: 54973 AE # 1089

PATIENT
  Age: 55 Year
  Sex: Female

DRUGS (3)
  1. ARNICA MONTANA [Suspect]
     Indication: BRUISING
  2. ARNICA MONTANA [Suspect]
     Indication: SWELLING
  3. PLAQUENIL AND MOBEC [Concomitant]

REACTIONS (2)
  - Hypersensitivity [None]
  - Chest pain [None]
